FAERS Safety Report 19953989 (Version 1)
Quarter: 2021Q4

REPORT INFORMATION
  Report Type: Spontaneous
  Country: PT (occurrence: PT)
  Receive Date: 20211014
  Receipt Date: 20211014
  Transmission Date: 20220303
  Serious: Yes (Hospitalization)
  Sender: FDA-Public Use
  Company Number: PT-MYLANLABS-2021M1071917

PATIENT
  Age: 76 Year
  Sex: Male

DRUGS (1)
  1. AMIODARONE [Suspect]
     Active Substance: AMIODARONE
     Indication: Post procedural complication
     Dosage: UNK, INTRAVENOUS
     Route: 042

REACTIONS (3)
  - Hyperthyroidism [Recovering/Resolving]
  - Seizure [Recovering/Resolving]
  - Thyrotoxic crisis [Recovering/Resolving]
